FAERS Safety Report 10811879 (Version 1)
Quarter: 2015Q1

REPORT INFORMATION
  Report Type: Spontaneous
  Country: PR (occurrence: PR)
  Receive Date: 20150217
  Receipt Date: 20150217
  Transmission Date: 20150721
  Serious: No
  Sender: FDA-Public Use
  Company Number: PR-ABBVIE-14K-131-1314468-00

PATIENT
  Age: 56 Year
  Sex: Female

DRUGS (2)
  1. HUMIRA [Suspect]
     Active Substance: ADALIMUMAB
     Indication: PSORIATIC ARTHROPATHY
     Route: 058
     Dates: start: 20140908
  2. METHOTREXATE [Concomitant]
     Active Substance: METHOTREXATE
     Indication: PRODUCT USED FOR UNKNOWN INDICATION
     Route: 048

REACTIONS (9)
  - Fear [Recovered/Resolved]
  - Anxiety [Recovered/Resolved]
  - Nausea [Unknown]
  - Injection site pain [Unknown]
  - Discomfort [Unknown]
  - Decreased appetite [Unknown]
  - Tremor [Unknown]
  - Nervousness [Unknown]
  - Feeling of despair [Recovered/Resolved]

NARRATIVE: CASE EVENT DATE: 201409
